FAERS Safety Report 17764097 (Version 1)
Quarter: 2020Q2

REPORT INFORMATION
  Report Type: Other
  Country: CN (occurrence: US)
  Receive Date: 20200511
  Receipt Date: 20200511
  Transmission Date: 20200714
  Serious: Yes (Hospitalization)
  Sender: FDA-Public Use
  Company Number: 2020-ECIPHARMA-000002-01

PATIENT
  Age: 12 Year
  Sex: Female

DRUGS (1)
  1. METHIMAZOLE. [Suspect]
     Active Substance: METHIMAZOLE
     Indication: HYPERTHYROIDISM
     Dosage: 2 DIVIDED DOSES

REACTIONS (1)
  - Atypical haemolytic uraemic syndrome [Recovered/Resolved]
